FAERS Safety Report 5816774-9 (Version None)
Quarter: 2008Q3

REPORT INFORMATION
  Report Type: 
  Country: None (occurrence: None)
  Receive Date: 20080721
  Receipt Date: 20080714
  Transmission Date: 20090109
  Serious: Yes (Hospitalization)
  Sender: FDA-Public Use
  Company Number: AU-BOEHRINGER INGELHEIM GMBH, GERMANY-2008-BP-11013AU

PATIENT
  Sex: Male

DRUGS (2)
  1. MOBIC [Suspect]
     Route: 048
  2. WARFARIN SODIUM [Concomitant]

REACTIONS (1)
  - HAEMORRHAGE [None]
